FAERS Safety Report 4752942-5 (Version None)
Quarter: 2005Q3

REPORT INFORMATION
  Report Type: 
  Country: None (occurrence: None)
  Receive Date: 20050823
  Receipt Date: 20050817
  Transmission Date: 20060218
  Serious: Yes (Death, Hospitalization)
  Sender: FDA-Public Use
  Company Number: 214890

PATIENT
  Age: 82 Year
  Sex: Male
  Weight: 55.8 kg

DRUGS (10)
  1. AVASTIN [Suspect]
     Indication: NEOPLASM MALIGNANT
     Dosage: 10 MG/KG, INTRAVENOUS
     Route: 042
     Dates: start: 20050218, end: 20050512
  2. ERLOTINIB (ERLOTINIB) TABLET, 150MG [Suspect]
     Indication: NEOPLASM MALIGNANT
     Dosage: 150 MG, ORAL
     Route: 048
     Dates: start: 20050218, end: 20050526
  3. MEGACE [Concomitant]
  4. OLUX (CLOBETASOL PROPIONATE) [Concomitant]
  5. GLYBURIDE [Concomitant]
  6. DARVOCET (ACETAMINOPHEN, PROPOXYPHENE NAPSYLATE) [Concomitant]
  7. PROTONIX [Concomitant]
  8. LASIX [Concomitant]
  9. ALDACTONE [Concomitant]
  10. ANZEMET [Concomitant]

REACTIONS (19)
  - ABDOMINAL DISTENSION [None]
  - ALANINE AMINOTRANSFERASE INCREASED [None]
  - ASPARTATE AMINOTRANSFERASE INCREASED [None]
  - ATELECTASIS [None]
  - BLOOD CALCIUM DECREASED [None]
  - BLOOD CREATININE INCREASED [None]
  - BLOOD UREA INCREASED [None]
  - CELLULITIS [None]
  - CEREBRAL INFARCTION [None]
  - DERMATITIS EXFOLIATIVE [None]
  - HAEMATOCRIT DECREASED [None]
  - HAEMOGLOBIN DECREASED [None]
  - HYPOGLYCAEMIA [None]
  - LUNG INFILTRATION [None]
  - MUCOSAL INFLAMMATION [None]
  - PLEURAL EFFUSION [None]
  - RESPIRATORY DISORDER [None]
  - SEPSIS [None]
  - SINUSITIS [None]
